FAERS Safety Report 6283791-7 (Version None)
Quarter: 2009Q3

REPORT INFORMATION
  Report Type: 
  Country: None (occurrence: None)
  Receive Date: 20090724
  Receipt Date: 20090721
  Transmission Date: 20100115
  Serious: Yes (Hospitalization, Other)
  Sender: FDA-Public Use
  Company Number: DE-ASTRAZENECA-2009SE05467

PATIENT
  Age: 35 Year
  Sex: Female
  Weight: 66 kg

DRUGS (2)
  1. SEROQUEL [Suspect]
     Dosage: SINGLE DOSE DIFFERENT, DAILY ADMINISTRATION
     Route: 048
     Dates: start: 20090325, end: 20090420
  2. FLUANXOL [Concomitant]
     Dosage: SINGLE DOSE DIFFERENT, BREAK: MAY-DEC 2008
     Route: 048
     Dates: start: 20070101, end: 20090324

REACTIONS (1)
  - LEUKOPENIA [None]
